FAERS Safety Report 8569775-4 (Version None)
Quarter: 2012Q3

REPORT INFORMATION
  Report Type: 
  Country: None (occurrence: None)
  Receive Date: 20120803
  Receipt Date: 20120620
  Transmission Date: 20120928
  Serious: No
  Sender: FDA-Public Use
  Company Number: US-ABBOTT-12P-163-0948303-00

PATIENT
  Sex: Female
  Weight: 59.02 kg

DRUGS (4)
  1. RED YEAST RICE [Concomitant]
     Indication: PRODUCT USED FOR UNKNOWN INDICATION
  2. MENEST [Concomitant]
     Indication: PRODUCT USED FOR UNKNOWN INDICATION
  3. NIASPAN [Suspect]
     Indication: BLOOD TRIGLYCERIDES ABNORMAL
     Dosage: 500MG EVERY NIGHT
     Dates: start: 20120606
  4. WELLBUTRIN [Concomitant]
     Indication: PRODUCT USED FOR UNKNOWN INDICATION

REACTIONS (6)
  - SKIN DISCOLOURATION [None]
  - URTICARIA [None]
  - FLUSHING [None]
  - ERYTHEMA [None]
  - PRURITUS [None]
  - FEELING HOT [None]
